FAERS Safety Report 4272622-2 (Version None)
Quarter: 2004Q1

REPORT INFORMATION
  Report Type: 
  Country: None (occurrence: None)
  Receive Date: 20040114
  Receipt Date: 20040114
  Transmission Date: 20041129
  Serious: Yes (Other)
  Sender: FDA-Public Use
  Company Number: None

PATIENT
  Age: 17 Month
  Sex: Male
  Weight: 10.8863 kg

DRUGS (2)
  1. AUGMENTIN ES-600 [Suspect]
     Indication: EAR INFECTION
     Dosage: 1 TSP B.I.D. UNTIL GONE!
     Dates: start: 20031229
  2. AUGMENTIN ES-600 [Suspect]
     Indication: PHARYNGITIS
     Dosage: 1 TSP B.I.D. UNTIL GONE!
     Dates: start: 20031229

REACTIONS (4)
  - DERMATITIS DIAPER [None]
  - DIARRHOEA [None]
  - MEDICATION ERROR [None]
  - VOMITING [None]
